FAERS Safety Report 6433469-1 (Version None)
Quarter: 2009Q4

REPORT INFORMATION
  Report Type: 
  Country: None (occurrence: None)
  Receive Date: 20091106
  Receipt Date: 20091106
  Transmission Date: 20100525
  Serious: No
  Sender: FDA-Public Use
  Company Number: None

PATIENT
  Age: 35 Year
  Sex: Female
  Weight: 56.6996 kg

DRUGS (1)
  1. DIHYDROERGOTAMINE MESYLATE 1MG [Suspect]
     Indication: MIGRAINE
     Dosage: 1MG PER MEDICAL RECORD ONCE IV
     Route: 042
     Dates: start: 20090910, end: 20090910

REACTIONS (7)
  - APHASIA [None]
  - BLOOD PRESSURE INCREASED [None]
  - CONDITION AGGRAVATED [None]
  - DYSARTHRIA [None]
  - HYPERACUSIS [None]
  - MIGRAINE [None]
  - PHOTOPHOBIA [None]
